FAERS Safety Report 15371805 (Version 2)
Quarter: 2018Q3

REPORT INFORMATION
  Report Type: Spontaneous
  Country: US (occurrence: US)
  Receive Date: 20180911
  Receipt Date: 20180924
  Transmission Date: 20181010
  Serious: No
  Sender: FDA-Public Use
  Company Number: US-CELGENEUS-USA-20180901390

PATIENT
  Age: 59 Year
  Sex: Male

DRUGS (4)
  1. SALEX [Concomitant]
     Active Substance: SALICYLIC ACID
     Indication: PSORIASIS
     Route: 061
  2. CLOBETASOL [Concomitant]
     Active Substance: CLOBETASOL
     Indication: PSORIASIS
     Route: 061
     Dates: start: 20120112, end: 20170907
  3. OTEZLA [Suspect]
     Active Substance: APREMILAST
     Indication: PSORIASIS
     Dosage: 60 MILLIGRAM
     Route: 048
     Dates: start: 20170907
  4. OTEZLA [Suspect]
     Active Substance: APREMILAST
     Dosage: 60 MILLIGRAM
     Route: 048
     Dates: start: 20171013

REACTIONS (2)
  - Drug dose omission [Unknown]
  - Psoriasis [Unknown]

NARRATIVE: CASE EVENT DATE: 20170907
